FAERS Safety Report 9654859 (Version 1)
Quarter: 2013Q4

REPORT INFORMATION
  Report Type: Spontaneous
  Country: US (occurrence: US)
  Receive Date: 20131029
  Receipt Date: 20131029
  Transmission Date: 20140711
  Serious: No
  Sender: FDA-Public Use
  Company Number: US-009507513-1310USA009212

PATIENT
  Age: 49 Year
  Sex: Male

DRUGS (6)
  1. LIPTRUZET [Suspect]
     Indication: BLOOD CHOLESTEROL INCREASED
     Dosage: 10/40 MG QD
     Route: 048
     Dates: start: 20131016
  2. ASPIRIN [Concomitant]
  3. PAROXETINE HYDROCHLORIDE [Concomitant]
  4. VOLTAREN [Concomitant]
  5. PRILOSEC [Concomitant]
  6. CORTISONE [Concomitant]
     Dosage: UNK

REACTIONS (1)
  - Blood cholesterol abnormal [Recovering/Resolving]
